FAERS Safety Report 16182969 (Version 1)
Quarter: 2019Q2

REPORT INFORMATION
  Report Type: Spontaneous
  Country: US (occurrence: US)
  Receive Date: 20190411
  Receipt Date: 20190411
  Transmission Date: 20190711
  Serious: No
  Sender: FDA-Public Use
  Company Number: US-SHIRE-US201911393

PATIENT
  Sex: Female
  Weight: 63.49 kg

DRUGS (4)
  1. VYVANSE [Suspect]
     Active Substance: LISDEXAMFETAMINE DIMESYLATE
     Indication: COGNITIVE DISORDER
     Dosage: 50 MILLIGRAM, 2X/DAY:BID
     Route: 048
     Dates: start: 2017
  2. XANAX [Concomitant]
     Active Substance: ALPRAZOLAM
     Indication: PRODUCT USED FOR UNKNOWN INDICATION
  3. VYVANSE [Suspect]
     Active Substance: LISDEXAMFETAMINE DIMESYLATE
     Indication: ROAD TRAFFIC ACCIDENT
  4. VYVANSE [Suspect]
     Active Substance: LISDEXAMFETAMINE DIMESYLATE
     Indication: CRANIOCEREBRAL INJURY

REACTIONS (3)
  - Prescribed overdose [Unknown]
  - Off label use [Unknown]
  - Product physical issue [Unknown]
